FAERS Safety Report 4599027-9 (Version None)
Quarter: 2005Q1

REPORT INFORMATION
  Report Type: 
  Country: None (occurrence: None)
  Receive Date: 20050302
  Receipt Date: 20050216
  Transmission Date: 20050727
  Serious: Yes (Death, Hospitalization)
  Sender: FDA-Public Use
  Company Number: 200510124BNE

PATIENT
  Age: 68 Year
  Sex: Female

DRUGS (7)
  1. CIPROFLOXACIN [Suspect]
     Dosage: 500 MG, TOTAL DAILY, ORAL
     Route: 048
     Dates: start: 20040702, end: 20040716
  2. FLUCONAZOLE [Suspect]
     Dosage: 100 MG, TOTAL DAILY
     Dates: start: 20040615
  3. ASPARAGINASE [Suspect]
     Indication: ACUTE LYMPHOCYTIC LEUKAEMIA
     Dosage: 9000 IU, TOTAL DAILY, INTRAVENOUS
     Route: 042
     Dates: start: 20040705, end: 20040713
  4. DAUNORUBICIN HCL [Concomitant]
  5. ONDANSETRON [Concomitant]
  6. PREDNISOLONE [Concomitant]
  7. VINCRISTINE [Concomitant]

REACTIONS (6)
  - ATRIAL FIBRILLATION [None]
  - ENCEPHALOPATHY [None]
  - HEPATIC FAILURE [None]
  - INAPPROPRIATE ANTIDIURETIC HORMONE SECRETION [None]
  - RENAL FAILURE [None]
  - SEPSIS [None]
